FAERS Safety Report 20998813 (Version 1)
Quarter: 2022Q2

REPORT INFORMATION
  Report Type: Spontaneous
  Country: US (occurrence: US)
  Receive Date: 20220623
  Receipt Date: 20220623
  Transmission Date: 20220721
  Serious: Yes (Other)
  Sender: FDA-Public Use
  Company Number: US-BioDelivery Sciences International-2022BDSI0100

PATIENT
  Age: 63 Year
  Sex: Male
  Weight: 131.66 kg

DRUGS (3)
  1. BELBUCA [Suspect]
     Active Substance: BUPRENORPHINE HYDROCHLORIDE
     Indication: Pain
     Route: 065
     Dates: start: 20220318, end: 20220324
  2. BELBUCA [Suspect]
     Active Substance: BUPRENORPHINE HYDROCHLORIDE
     Route: 065
     Dates: start: 20220325
  3. LYRICA [Concomitant]
     Active Substance: PREGABALIN
     Indication: Pain
     Route: 065

REACTIONS (4)
  - Drug withdrawal syndrome [Recovered/Resolved]
  - Poor quality product administered [Unknown]
  - Therapeutic response decreased [Unknown]
  - Product colour issue [Unknown]

NARRATIVE: CASE EVENT DATE: 20220301
